FAERS Safety Report 16308247 (Version 1)
Quarter: 2019Q2

REPORT INFORMATION
  Report Type: Spontaneous
  Country: JP (occurrence: JP)
  Receive Date: 20190514
  Receipt Date: 20190514
  Transmission Date: 20190711
  Serious: Yes (Death, Other)
  Sender: FDA-Public Use
  Company Number: PHHY2019JP107709

PATIENT
  Age: 67 Year

DRUGS (2)
  1. ETOPOSIDE. [Concomitant]
     Active Substance: ETOPOSIDE
     Indication: SMALL CELL LUNG CANCER
     Route: 065
  2. PACLITAXEL. [Suspect]
     Active Substance: PACLITAXEL
     Indication: SMALL CELL LUNG CANCER
     Route: 065

REACTIONS (3)
  - Idiopathic interstitial pneumonia [Unknown]
  - Concomitant disease aggravated [Unknown]
  - Respiratory failure [Fatal]
